FAERS Safety Report 11170572 (Version 2)
Quarter: 2015Q4

REPORT INFORMATION
  Report Type: Spontaneous
  Country: GB (occurrence: GB)
  Receive Date: 20150608
  Receipt Date: 20151126
  Transmission Date: 20160304
  Serious: Yes (Other)
  Sender: FDA-Public Use
  Company Number: GB-AMGEN-GBRSP2015054565

PATIENT
  Age: 66 Year
  Sex: Female

DRUGS (3)
  1. PREDNISOLONE. [Concomitant]
     Active Substance: PREDNISOLONE
  2. TAXOL [Concomitant]
     Active Substance: PACLITAXEL
  3. PROLIA [Suspect]
     Active Substance: DENOSUMAB
     Indication: PRODUCT USED FOR UNKNOWN INDICATION
     Dosage: UNK
     Route: 065

REACTIONS (13)
  - Neuropathy peripheral [Unknown]
  - Infection [Unknown]
  - Fracture [Unknown]
  - Bone disorder [Unknown]
  - Chronic obstructive pulmonary disease [Unknown]
  - Fatigue [Unknown]
  - Contusion [Unknown]
  - Skin fragility [Unknown]
  - Bone neoplasm [Unknown]
  - Fall [Unknown]
  - Tooth infection [Unknown]
  - Asthenia [Unknown]
  - Laceration [Unknown]

NARRATIVE: CASE EVENT DATE: 2015
